FAERS Safety Report 24302382 (Version 1)
Quarter: 2024Q3

REPORT INFORMATION
  Report Type: Spontaneous
  Country: US (occurrence: US)
  Receive Date: 20240910
  Receipt Date: 20240910
  Transmission Date: 20241017
  Serious: Yes (Other)
  Sender: MYLAN
  Company Number: US-MYLANLABS-2024M1082268

PATIENT
  Age: 66 Year
  Sex: Female

DRUGS (7)
  1. GABAPENTIN [Suspect]
     Active Substance: GABAPENTIN
     Indication: Small fibre neuropathy
     Dosage: 1200 MILLIGRAM, QD; MAXIMUM DOSE OF 1200 MG/D
     Route: 065
  2. CROMOLYN [Suspect]
     Active Substance: CROMOLYN
     Indication: Mast cell activation syndrome
     Dosage: 800 MILLIGRAM, QD
     Route: 048
  3. Immunoglobulin [Concomitant]
     Indication: Small fibre neuropathy
     Dosage: UNK
     Route: 058
  4. CETIRIZINE [Concomitant]
     Active Substance: CETIRIZINE HYDROCHLORIDE
     Indication: Small fibre neuropathy
     Dosage: UNK
     Route: 065
  5. LORATADINE [Concomitant]
     Active Substance: LORATADINE
     Indication: Small fibre neuropathy
     Dosage: 10 MILLIGRAM, QD; MAXIMUM DOSE OF 10 MG/D
     Route: 065
  6. FAMOTIDINE [Concomitant]
     Active Substance: FAMOTIDINE
     Indication: Small fibre neuropathy
     Dosage: 40 MILLIGRAM, QD
     Route: 065
  7. PROPRANOLOL [Concomitant]
     Active Substance: PROPRANOLOL HYDROCHLORIDE
     Indication: Small fibre neuropathy
     Dosage: 30 MILLIGRAM, QD
     Route: 065

REACTIONS (1)
  - Drug ineffective [Unknown]
